FAERS Safety Report 6365895-3 (Version None)
Quarter: 2009Q3

REPORT INFORMATION
  Report Type: 
  Country: None (occurrence: None)
  Receive Date: 20090919
  Receipt Date: 20090819
  Transmission Date: 20100115
  Serious: No
  Sender: FDA-Public Use
  Company Number: US-ABBOTT-09P-163-0593178-00

PATIENT
  Sex: Female
  Weight: 80.812 kg

DRUGS (6)
  1. HUMIRA [Suspect]
     Indication: CROHN'S DISEASE
     Dosage: 160 MG
     Dates: start: 20090806, end: 20090806
  2. TYLENOL (CAPLET) [Concomitant]
     Indication: PAIN
  3. MUCINEX [Concomitant]
     Indication: SINUS CONGESTION
  4. AFRIN [Concomitant]
     Indication: RESPIRATORY TRACT CONGESTION
  5. REMICADE [Concomitant]
     Indication: CROHN'S DISEASE
  6. IMURAN [Concomitant]
     Indication: CROHN'S DISEASE

REACTIONS (5)
  - ABDOMINAL PAIN UPPER [None]
  - CHOLECYSTITIS [None]
  - CHOLELITHIASIS [None]
  - DYSPNOEA [None]
  - IMPAIRED HEALING [None]
